FAERS Safety Report 9547169 (Version 1)
Quarter: 2013Q2

REPORT INFORMATION
  Report Type: Spontaneous
  Country: US (occurrence: None)
  Receive Date: 20130606
  Receipt Date: 20130606
  Transmission Date: 20140414
  Serious: No
  Sender: FDA-Public Use
  Company Number: 2013PROUSA02568

PATIENT
  Age: 60 Year
  Sex: Male
  Weight: 63.9 kg

DRUGS (5)
  1. PROVENGE (SIPULEUCEL-T) SUSPENSION, 250ML [Suspect]
     Indication: PROSTATE CANCER METASTATIC
     Dosage: 250 ML, SINGLE, INTRAVENOUS
     Route: 042
     Dates: start: 20130124, end: 20130124
  2. PILOCARPINE (PILOCARPINE HYDROCHLORIDE) [Concomitant]
  3. METFORMIN (METFORMIN HYDROCHLORIDE) [Concomitant]
  4. SIMVASTATIN (SIMVASTATIKN) [Concomitant]
  5. LUPRON (LEUPRORELIN ACETATE) [Concomitant]

REACTIONS (3)
  - Alopecia [None]
  - Weight decreased [None]
  - Fatigue [None]
